FAERS Safety Report 9619551 (Version 1)
Quarter: 2013Q4

REPORT INFORMATION
  Report Type: Report from Study
  Country: LB (occurrence: LB)
  Receive Date: 20131014
  Receipt Date: 20131014
  Transmission Date: 20140711
  Serious: Yes (Hospitalization)
  Sender: FDA-Public Use
  Company Number: LB-SA-2013SA101992

PATIENT
  Age: 63 Year
  Sex: Female

DRUGS (8)
  1. LANTUS SOLOSTAR [Suspect]
     Indication: DIABETES MELLITUS
     Dosage: DOSE:36 UNIT(S)
     Route: 058
  2. SOLOSTAR [Concomitant]
     Indication: DEVICE THERAPY
  3. COAPROVEL [Concomitant]
     Route: 048
  4. CO-DIOVAN [Concomitant]
     Route: 048
  5. ALDACTONE [Concomitant]
     Route: 048
  6. MICARDIS [Concomitant]
     Route: 048
  7. ALFACALCIDOL [Concomitant]
     Route: 048
  8. LASIX [Concomitant]
     Route: 048

REACTIONS (4)
  - Viral infection [Recovered/Resolved]
  - Vomiting [Recovered/Resolved]
  - Hypercholesterolaemia [Recovered/Resolved]
  - Blood uric acid abnormal [Recovered/Resolved]
